FAERS Safety Report 13964215 (Version 1)
Quarter: 2017Q3

REPORT INFORMATION
  Report Type: Spontaneous
  Country: US (occurrence: None)
  Receive Date: 20170913
  Receipt Date: 20170913
  Transmission Date: 20171128
  Serious: Yes (Hospitalization)
  Sender: FDA-Public Use
  Company Number: None

PATIENT
  Age: 69 Year
  Sex: Male
  Weight: 79.92 kg

DRUGS (1)
  1. SULFAMETHIZOLE/TRIMETHOPRIM [Suspect]
     Active Substance: SULFAMETHOXAZOLE\TRIMETHOPRIM
     Indication: URINARY TRACT INFECTION
     Dosage: 400/80 MG
     Route: 048
     Dates: start: 20170510, end: 20170531

REACTIONS (5)
  - Rash [None]
  - Hyperkalaemia [None]
  - Blood creatinine increased [None]
  - Blood urea increased [None]
  - Urticaria [None]

NARRATIVE: CASE EVENT DATE: 20170605
